FAERS Safety Report 7180049-9 (Version None)
Quarter: 2010Q4

REPORT INFORMATION
  Report Type: 
  Country: None (occurrence: None)
  Receive Date: 20101208
  Receipt Date: 20101119
  Transmission Date: 20110411
  Serious: Yes (Congenital Anomaly)
  Sender: FDA-Public Use
  Company Number: 2010P1002827

PATIENT
  Sex: Male
  Weight: 1.35 kg

DRUGS (7)
  1. WARFARIN (NO PREF. NAME) [Suspect]
     Indication: DEEP VEIN THROMBOSIS
  2. TEGRETOL (MATERNAL USE) [Concomitant]
  3. KEPPRA (MATERNAL USE) [Concomitant]
  4. TOPAMAX (MATERNAL USE) [Concomitant]
  5. CELEXA (MATERNAL USE) [Concomitant]
  6. LOVASTATIN (MATERNAL USE) [Concomitant]
  7. PREV MEDS [Concomitant]

REACTIONS (7)
  - CHONDRODYSTROPHY [None]
  - CONGENITAL NOSE MALFORMATION [None]
  - DYSMORPHISM [None]
  - MATERNAL DRUGS AFFECTING FOETUS [None]
  - NEONATAL RESPIRATORY DISTRESS SYNDROME [None]
  - PHALANGEAL HYPOPLASIA [None]
  - PREMATURE BABY [None]
